FAERS Safety Report 7220440-5 (Version None)
Quarter: 2011Q1

REPORT INFORMATION
  Report Type: 
  Country: None (occurrence: None)
  Receive Date: 20110111
  Receipt Date: 20110104
  Transmission Date: 20110831
  Serious: Yes (Hospitalization)
  Sender: FDA-Public Use
  Company Number: US-US-EMD SERONO, INC.-7034629

PATIENT
  Sex: Female

DRUGS (2)
  1. INHALER [Concomitant]
     Indication: ASTHMA
  2. REBIF [Suspect]
     Indication: MULTIPLE SCLEROSIS
     Route: 058
     Dates: start: 20100805

REACTIONS (5)
  - OXYGEN SATURATION ABNORMAL [None]
  - BLOOD COUNT ABNORMAL [None]
  - ABDOMINAL PAIN UPPER [None]
  - HAEMATOCHEZIA [None]
  - BLOOD URINE PRESENT [None]
